FAERS Safety Report 4620590-3 (Version None)
Quarter: 2005Q1

REPORT INFORMATION
  Report Type: 
  Country: None (occurrence: None)
  Receive Date: 20050324
  Receipt Date: 20050304
  Transmission Date: 20050727
  Serious: Yes (Other)
  Sender: FDA-Public Use
  Company Number: USA050392431

PATIENT
  Age: 60 Year
  Sex: Female
  Weight: 80 kg

DRUGS (3)
  1. HUMALOG [Suspect]
     Indication: DIABETES MELLITUS
     Dosage: 45 U DAY
     Dates: start: 19900101
  2. HUMULIN L [Suspect]
     Indication: DIABETES MELLITUS
     Dosage: 15 U IN THE EVENING
     Dates: start: 19900101
  3. HUMULIN U [Suspect]
     Indication: DIABETES MELLITUS
     Dosage: 15 U IN THE MORNING
     Dates: start: 19900101

REACTIONS (3)
  - CATARACT [None]
  - EYE DISORDER [None]
  - EYE HAEMORRHAGE [None]
